FAERS Safety Report 16341950 (Version 1)
Quarter: 2019Q2

REPORT INFORMATION
  Report Type: Spontaneous
  Country: US (occurrence: US)
  Receive Date: 20190521
  Receipt Date: 20190521
  Transmission Date: 20190711
  Serious: Yes (Disabling)
  Sender: FDA-Public Use
  Company Number: None

PATIENT
  Age: 32 Year
  Sex: Male
  Weight: 82 kg

DRUGS (1)
  1. INFLECTRA [Suspect]
     Active Substance: INFLIXIMAB-DYYB
     Indication: COLITIS ULCERATIVE
     Dosage: ?          OTHER FREQUENCY:EVERY 6 WEEKS;?
     Route: 042
     Dates: start: 20180423, end: 20190502

REACTIONS (1)
  - Systemic lupus erythematosus [None]

NARRATIVE: CASE EVENT DATE: 20190509
